FAERS Safety Report 7925892-0 (Version None)
Quarter: 2011Q4

REPORT INFORMATION
  Report Type: 
  Country: None (occurrence: None)
  Receive Date: 20111118
  Receipt Date: 20110414
  Transmission Date: 20120403
  Serious: No
  Sender: FDA-Public Use
  Company Number: US-AMGEN-USASP2011019946

PATIENT
  Age: 79 Year
  Sex: Female

DRUGS (1)
  1. ENBREL [Suspect]
     Indication: RHEUMATOID ARTHRITIS
     Dosage: 50 MG, QWK
     Dates: start: 20070627

REACTIONS (5)
  - MALAISE [None]
  - ARTHRALGIA [None]
  - JOINT STIFFNESS [None]
  - MOBILITY DECREASED [None]
  - FUNGAL SKIN INFECTION [None]
